FAERS Safety Report 25997819 (Version 1)
Quarter: 2025Q4

REPORT INFORMATION
  Report Type: Spontaneous
  Country: JP (occurrence: JP)
  Receive Date: 20251105
  Receipt Date: 20251105
  Transmission Date: 20260117
  Serious: Yes (Death)
  Sender: BOEHRINGER INGELHEIM
  Company Number: JP-NBI-2025-BI-105314

PATIENT

DRUGS (2)
  1. OFEV [Suspect]
     Active Substance: NINTEDANIB
     Indication: Interstitial lung disease
  2. OFEV [Suspect]
     Active Substance: NINTEDANIB
     Indication: Systemic scleroderma

REACTIONS (2)
  - Interstitial lung disease [Fatal]
  - Systemic scleroderma [Fatal]
